FAERS Safety Report 8906174 (Version 1)
Quarter: 2012Q4

REPORT INFORMATION
  Report Type: Spontaneous
  Country: IT (occurrence: None)
  Receive Date: 20121109
  Receipt Date: 20121109
  Transmission Date: 20130627
  Serious: Yes (Hospitalization)
  Sender: FDA-Public Use
  Company Number: GER/ITL/12/0026537

PATIENT
  Sex: Male

DRUGS (2)
  1. OLANZAPINE (OLANZAPINE) [Suspect]
     Indication: DRUG USE FOR UNKNOWN INDICATION
  2. RAMIPRIL (RAMIPRIL) [Suspect]
     Indication: DRUG USE FOR UNKNOWN INDICATION

REACTIONS (2)
  - Intentional self-injury [None]
  - Poisoning deliberate [None]
